FAERS Safety Report 16631493 (Version 2)
Quarter: 2019Q3

REPORT INFORMATION
  Report Type: Spontaneous
  Country: ES (occurrence: ES)
  Receive Date: 20190725
  Receipt Date: 20190725
  Transmission Date: 20191004
  Serious: Yes (Death, Hospitalization)
  Sender: FDA-Public Use
  Company Number: PHHY2019ES172172

PATIENT
  Age: 80 Year
  Sex: Male

DRUGS (6)
  1. DOXAZOSIN [Concomitant]
     Active Substance: DOXAZOSIN MESYLATE
     Indication: HYPERTENSION
     Dosage: 4 MG, QD
     Route: 048
     Dates: start: 201408, end: 20190307
  2. MYFORTIC [Suspect]
     Active Substance: MYCOPHENOLATE SODIUM
     Indication: SOLID ORGAN TRANSPLANT
     Dosage: 1.44 G, QD
     Route: 048
     Dates: start: 201408, end: 20190307
  3. PREDNISONE. [Interacting]
     Active Substance: PREDNISONE
     Indication: SOLID ORGAN TRANSPLANT
     Dosage: 5 MG, QD
     Route: 048
     Dates: start: 201311, end: 20190307
  4. CICLOSPORIN [Interacting]
     Active Substance: CYCLOSPORINE
     Indication: SOLID ORGAN TRANSPLANT
     Dosage: 150 MG, QD
     Route: 048
     Dates: start: 201408, end: 20190307
  5. PARICALCITOL. [Concomitant]
     Active Substance: PARICALCITOL
     Indication: HYPOTHYROIDISM
     Dosage: 1 UG, QD
     Route: 048
     Dates: start: 201408, end: 20190307
  6. ENOXAPARINA SODICA [Concomitant]
     Active Substance: ENOXAPARIN SODIUM
     Indication: ATRIAL FIBRILLATION
     Dosage: 60 MG, QD
     Route: 058
     Dates: start: 2018, end: 20190307

REACTIONS (1)
  - Pneumonia cytomegaloviral [Fatal]

NARRATIVE: CASE EVENT DATE: 20190304
